FAERS Safety Report 9388898 (Version 1)
Quarter: 2013Q3

REPORT INFORMATION
  Report Type: Spontaneous
  Country: GB (occurrence: GB)
  Receive Date: 20130708
  Receipt Date: 20130708
  Transmission Date: 20140515
  Serious: Yes (Other)
  Sender: FDA-Public Use
  Company Number: GB-TEVA-416478ISR

PATIENT
  Sex: Male
  Weight: 82 kg

DRUGS (13)
  1. METFORMIN [Suspect]
     Indication: DIABETES MELLITUS
     Dosage: 1700 MILLIGRAM DAILY;
     Route: 048
     Dates: start: 201010, end: 20130603
  2. PIOGLITAZONE [Suspect]
     Dosage: 45 MILLIGRAM DAILY;
  3. ADCAL-D3 [Concomitant]
     Dosage: 2 DOSAGE FORMS DAILY;
  4. ATENOLOL [Concomitant]
     Dosage: 100 MILLIGRAM DAILY;
  5. BUTRANS [Concomitant]
  6. CLOPIDOGREL [Concomitant]
     Dosage: 75 MILLIGRAM DAILY;
  7. CODEINE [Concomitant]
  8. FUROSEMIDE [Concomitant]
     Dosage: 80 MILLIGRAM DAILY; IN THE MORNING (PREVIOUS 40MG)
     Dates: start: 20130528
  9. DEXCEL-PHARMA OMEPRAZOLE [Concomitant]
     Dosage: 20 MILLIGRAM DAILY; OM
  10. PERINDOPRIL [Concomitant]
     Dosage: 8 MILLIGRAM DAILY; IN THE MORNING
  11. SIMVADOR [Concomitant]
     Dosage: 20 MILLIGRAM DAILY; AT NIGHT
  12. PREDNISOLONE [Concomitant]
  13. TAMSULOSIN [Concomitant]
     Dosage: 800 MICROGRAM DAILY;

REACTIONS (1)
  - Cardiac failure [Recovering/Resolving]
